FAERS Safety Report 17643681 (Version 4)
Quarter: 2025Q3

REPORT INFORMATION
  Report Type: Report from Study
  Country: EU (occurrence: EU)
  Receive Date: 20200408
  Receipt Date: 20250714
  Transmission Date: 20251021
  Serious: Yes (Other)
  Sender: AUROBINDO
  Company Number: EU-ZYDUS-048452

PATIENT
  Age: 43 Year
  Sex: Male

DRUGS (2)
  1. DUTASTERIDE [Suspect]
     Active Substance: DUTASTERIDE
     Indication: Androgenetic alopecia
     Route: 048
  2. DUTASTERIDE [Suspect]
     Active Substance: DUTASTERIDE
     Dosage: 2.5 MILLIGRAM, EVERY WEEK
     Route: 048

REACTIONS (2)
  - Erectile dysfunction [Recovered/Resolved]
  - Off label use [Recovered/Resolved]
